FAERS Safety Report 9213633 (Version 1)
Quarter: 2013Q2

REPORT INFORMATION
  Report Type: Spontaneous
  Country: US (occurrence: US)
  Receive Date: 20130405
  Receipt Date: 20130405
  Transmission Date: 20140414
  Serious: Yes (Other)
  Sender: FDA-Public Use
  Company Number: US-ASTELLAS-2013US003619

PATIENT
  Age: 7 Year
  Sex: Female
  Weight: 17 kg

DRUGS (1)
  1. AMBISOME [Suspect]
     Indication: CRYPTOCOCCOSIS
     Dosage: 10 MG/KG, UID/QD
     Route: 065
     Dates: start: 201302

REACTIONS (2)
  - Hepatic failure [Unknown]
  - Cholelithiasis [Unknown]
